FAERS Safety Report 10551475 (Version 2)
Quarter: 2018Q1

REPORT INFORMATION
  Report Type: Spontaneous
  Country: SE (occurrence: SE)
  Receive Date: 20141029
  Receipt Date: 20180220
  Transmission Date: 20180508
  Serious: Yes (Death)
  Sender: FDA-Public Use
  Company Number: SE-JNJFOC-20141015356

PATIENT
  Age: 5 Year
  Sex: Female

DRUGS (2)
  1. IBUPROFEN. [Suspect]
     Active Substance: IBUPROFEN
     Indication: PYREXIA
     Route: 065
  2. VALPROIC ACID. [Suspect]
     Active Substance: VALPROIC ACID
     Indication: MUSCLE SPASMS
     Dosage: SINCE HALF A YEAR
     Route: 065

REACTIONS (2)
  - Brain oedema [Fatal]
  - Hepatic failure [Fatal]
